FAERS Safety Report 6571907-4 (Version None)
Quarter: 2010Q1

REPORT INFORMATION
  Report Type: 
  Country: None (occurrence: None)
  Receive Date: 20100205
  Receipt Date: 20100127
  Transmission Date: 20100710
  Serious: Yes (Other)
  Sender: FDA-Public Use
  Company Number: US-ROCHE-677393

PATIENT
  Sex: Female
  Weight: 63.5 kg

DRUGS (9)
  1. CAPECITABINE [Suspect]
     Dosage: FREQUENCY: 2 WEEKS ON AND ONE WEEK OFF (4 TAB AM, 3 TAB PM)
     Route: 048
     Dates: start: 20091104
  2. CAPECITABINE [Suspect]
     Route: 048
  3. BEVACIZUMAB [Suspect]
     Dosage: DOSE: 25 MG/ML
     Route: 042
  4. MEGACE [Concomitant]
     Dosage: DOSE: 40MG/ML, 4 TEASPOON, TAKE EVERY DAY
     Route: 048
  5. OXYCODONE HCL [Concomitant]
     Dosage: EVERY 4 HOURS, AS NEEDED
  6. OXYCONTIN [Concomitant]
     Dosage: FORM: TABLET EXTENDED RELEASE
     Route: 048
  7. SENNA [Concomitant]
     Dosage: DRUG REPORTED: SENNA S (DOCUSSATE-SENNA)
     Route: 048
  8. SERTRALINE HCL [Concomitant]
     Dosage: TAKE EVERY DAY
     Route: 048
  9. ZOFRAN [Concomitant]
     Dosage: DRUG: ZOFRAN ODT, TABLET DISINTEGRATING, EVERY 6 HOURS AS NEEDED
     Route: 048

REACTIONS (9)
  - BLOOD ALKALINE PHOSPHATASE INCREASED [None]
  - BLOOD BILIRUBIN INCREASED [None]
  - ERYTHEMA [None]
  - FLUID RETENTION [None]
  - OCULAR ICTERUS [None]
  - PAIN IN EXTREMITY [None]
  - RASH [None]
  - SKIN FISSURES [None]
  - STOMATITIS [None]
